FAERS Safety Report 25332263 (Version 1)
Quarter: 2025Q2

REPORT INFORMATION
  Report Type: Spontaneous
  Country: HU (occurrence: HU)
  Receive Date: 20250519
  Receipt Date: 20250519
  Transmission Date: 20250717
  Serious: Yes (Other)
  Sender: ROCHE
  Company Number: HU-ROCHE-10000285199

PATIENT
  Age: 25 Year
  Sex: Female

DRUGS (7)
  1. CELLCEPT [Suspect]
     Active Substance: MYCOPHENOLATE MOFETIL
     Indication: Product used for unknown indication
     Route: 065
  2. PREDNISONE [Concomitant]
     Active Substance: PREDNISONE
  3. TYLENOL [Concomitant]
     Active Substance: ACETAMINOPHEN
  4. OXYCODONE [Concomitant]
     Active Substance: OXYCODONE
  5. TRAMADOL [Concomitant]
     Active Substance: TRAMADOL
  6. ZOFRAN [Concomitant]
     Active Substance: ONDANSETRON HYDROCHLORIDE
  7. MYFORTIC [Concomitant]
     Active Substance: MYCOPHENOLATE SODIUM

REACTIONS (1)
  - Gastrointestinal disorder [Recovering/Resolving]
